FAERS Safety Report 6132291-3 (Version None)
Quarter: 2009Q1

REPORT INFORMATION
  Report Type: 
  Country: None (occurrence: None)
  Receive Date: 20090325
  Receipt Date: 20090310
  Transmission Date: 20090719
  Serious: Yes (Life-Threatening, Hospitalization, Other)
  Sender: FDA-Public Use
  Company Number: FR-PFIZER INC-2008047404

PATIENT

DRUGS (5)
  1. LYRICA [Suspect]
     Indication: PAIN
  2. LYRICA [Interacting]
     Indication: NEUROPATHY PERIPHERAL
  3. SEVREDOL [Interacting]
     Indication: PAIN
     Dates: start: 20080601
  4. RIVOTRIL [Concomitant]
     Indication: PAIN
  5. ALL OTHER THERAPEUTIC PRODUCTS [Concomitant]

REACTIONS (7)
  - CARDIAC ARREST [None]
  - DRUG INEFFECTIVE [None]
  - DRUG INTERACTION [None]
  - FALL [None]
  - INTENTIONAL DRUG MISUSE [None]
  - LOSS OF CONSCIOUSNESS [None]
  - MALAISE [None]
